FAERS Safety Report 4484984-1 (Version None)
Quarter: 2004Q3

REPORT INFORMATION
  Report Type: 
  Country: None (occurrence: None)
  Receive Date: 20040921
  Receipt Date: 20030917
  Transmission Date: 20050211
  Serious: Yes (Other)
  Sender: FDA-Public Use
  Company Number: 163-20785-03090595

PATIENT
  Age: 70 Year
  Sex: Male
  Weight: 88 kg

DRUGS (8)
  1. THALOMID [Suspect]
     Indication: CHRONIC LYMPHOCYTIC LEUKAEMIA
     Dosage: 200 MG, DAILY, ORAL
     Route: 048
     Dates: end: 20030915
  2. FLUDARABINE [Suspect]
     Indication: CHRONIC LYMPHOCYTIC LEUKAEMIA
     Dosage: 25 MG/M2
  3. FOLIC ACID [Concomitant]
  4. MULTI-VITAMINS [Concomitant]
  5. B COMPLEX ELX [Concomitant]
  6. VITAMIN C (ASCORBIC ACID) [Concomitant]
  7. COLACE (DOCUSATE SODIUM) [Concomitant]
  8. COUMADIN [Concomitant]

REACTIONS (1)
  - PULMONARY EMBOLISM [None]
